FAERS Safety Report 7299065-1 (Version None)
Quarter: 2011Q1

REPORT INFORMATION
  Report Type: 
  Country: None (occurrence: None)
  Receive Date: 20110217
  Receipt Date: 20110213
  Transmission Date: 20110831
  Serious: Yes (Hospitalization)
  Sender: FDA-Public Use
  Company Number: US-ABBOTT-11P-163-0705425-00

PATIENT
  Sex: Female
  Weight: 53.572 kg

DRUGS (3)
  1. RITALIN [Concomitant]
     Indication: ATTENTION DEFICIT/HYPERACTIVITY DISORDER
  2. HUMIRA [Suspect]
     Indication: COLITIS ULCERATIVE
     Dates: start: 20080101, end: 20090101
  3. HUMIRA [Suspect]
     Dates: start: 20100101

REACTIONS (9)
  - COLITIS [None]
  - INJECTION SITE RASH [None]
  - PYREXIA [None]
  - PELVIC FRACTURE [None]
  - FEELING HOT [None]
  - ROAD TRAFFIC ACCIDENT [None]
  - COLITIS ULCERATIVE [None]
  - HERNIA OBSTRUCTIVE [None]
  - FEMALE GENITAL TRACT FISTULA [None]
